FAERS Safety Report 5960884-2 (Version None)
Quarter: 2008Q4

REPORT INFORMATION
  Report Type: 
  Country: None (occurrence: None)
  Receive Date: 20081118
  Receipt Date: 20081103
  Transmission Date: 20090506
  Serious: Yes (Life-Threatening)
  Sender: FDA-Public Use
  Company Number: 2008S1019820

PATIENT
  Age: 44 Year
  Sex: Female

DRUGS (2)
  1. DOXEPIN HCL [Suspect]
     Indication: DRUG USE FOR UNKNOWN INDICATION
     Dosage: 50 MG; ORAL
     Route: 048
     Dates: start: 20080101
  2. LYRICA [Concomitant]

REACTIONS (2)
  - DIZZINESS [None]
  - TORSADE DE POINTES [None]
